FAERS Safety Report 21930184 (Version 1)
Quarter: 2023Q1

REPORT INFORMATION
  Report Type: Spontaneous
  Country: NL (occurrence: NL)
  Receive Date: 20230131
  Receipt Date: 20230131
  Transmission Date: 20230417
  Serious: Yes (Other)
  Sender: FDA-Public Use
  Company Number: NL-009507513-2301NLD009482

PATIENT
  Sex: Male

DRUGS (1)
  1. PEMBROLIZUMAB [Suspect]
     Active Substance: PEMBROLIZUMAB
     Indication: Malignant melanoma stage IV
     Dosage: UNK, TOTAL OF 6 CYCLES

REACTIONS (2)
  - Chronic myeloid leukaemia [Unknown]
  - Immune-mediated arthritis [Unknown]
